FAERS Safety Report 8287177-5 (Version None)
Quarter: 2012Q2

REPORT INFORMATION
  Report Type: 
  Country: None (occurrence: None)
  Receive Date: 20120416
  Receipt Date: 20120404
  Transmission Date: 20120825
  Serious: Yes (Other)
  Sender: FDA-Public Use
  Company Number: FR-ROCHE-1057154

PATIENT
  Age: 40 Year
  Sex: Female

DRUGS (7)
  1. OXAZEPAM [Concomitant]
     Indication: INSOMNIA
     Dosage: 2 TABLETS DAILY
  2. ABILIFY [Concomitant]
     Indication: PERSONALITY DISORDER
  3. ESCITALOPRAM [Concomitant]
     Indication: INSOMNIA
  4. ALPRIM [Concomitant]
  5. CLONAZEPAM [Suspect]
     Indication: INSOMNIA
  6. KETOPROFEN [Concomitant]
  7. TERCIAN [Concomitant]
     Dosage: AT 15 DROPS DAILY

REACTIONS (2)
  - WITHDRAWAL SYNDROME [None]
  - POLYNEUROPATHY [None]
